FAERS Safety Report 5942838-5 (Version None)
Quarter: 2008Q4

REPORT INFORMATION
  Report Type: 
  Country: None (occurrence: None)
  Receive Date: 20081103
  Receipt Date: 20081010
  Transmission Date: 20090506
  Serious: Yes (Hospitalization, Other)
  Sender: FDA-Public Use
  Company Number: 2008BI024303

PATIENT
  Age: 60 Year
  Sex: Female
  Weight: 102.7 kg

DRUGS (14)
  1. AVONEX [Suspect]
     Indication: MULTIPLE SCLEROSIS
     Dosage: 30 UG; IM ; IM; 30 UG;QW; IM
     Route: 030
     Dates: start: 19990101
  2. MULTIVITAMIN WITH IRON [Concomitant]
  3. DEPAKOTE [Concomitant]
  4. PROVIGIL [Concomitant]
  5. VESICARE [Concomitant]
  6. AMITRIPTYLINE HCL [Concomitant]
  7. ASCORBIC ACID [Concomitant]
  8. COLACE [Concomitant]
  9. DYAZIDE [Concomitant]
  10. TIZANIDINE HCL [Concomitant]
  11. SYNTHROID [Concomitant]
  12. ALENDRONATE SODIUM [Concomitant]
  13. CRANBERRY [Concomitant]
  14. ANTIBIOTICS [NOS] [Concomitant]

REACTIONS (15)
  - CATARACT [None]
  - CELLULITIS [None]
  - CONDITION AGGRAVATED [None]
  - DECUBITUS ULCER [None]
  - DEVICE RELATED INFECTION [None]
  - ESCHAR [None]
  - IMMOBILE [None]
  - METABOLIC ALKALOSIS [None]
  - MULTIPLE SCLEROSIS [None]
  - NEUROGENIC BLADDER [None]
  - NEUROGENIC BOWEL [None]
  - OSTEOMYELITIS [None]
  - PSEUDOMONAS INFECTION [None]
  - SKIN ULCER [None]
  - URINARY TRACT INFECTION [None]
